FAERS Safety Report 24132419 (Version 1)
Quarter: 2024Q3

REPORT INFORMATION
  Report Type: Spontaneous
  Country: FR (occurrence: FR)
  Receive Date: 20240724
  Receipt Date: 20240724
  Transmission Date: 20241016
  Serious: Yes (Hospitalization)
  Sender: PFIZER
  Company Number: None

PATIENT
  Age: 105 Year
  Sex: Female
  Weight: 65.4 kg

DRUGS (1)
  1. METHOTREXATE SODIUM [Suspect]
     Active Substance: METHOTREXATE SODIUM
     Indication: Arthralgia
     Dosage: 10 MG, 1X/DAY
     Route: 048
     Dates: start: 20240701, end: 20240707

REACTIONS (6)
  - Pancytopenia [Recovering/Resolving]
  - Diverticulitis [Recovering/Resolving]
  - Rash papular [Recovering/Resolving]
  - Product prescribing error [Recovered/Resolved]
  - Gastrointestinal disorder [Recovering/Resolving]
  - Mucosal inflammation [Recovering/Resolving]

NARRATIVE: CASE EVENT DATE: 20240701
